FAERS Safety Report 8205375-3 (Version None)
Quarter: 2012Q1

REPORT INFORMATION
  Report Type: 
  Country: None (occurrence: None)
  Receive Date: 20120313
  Receipt Date: 20120305
  Transmission Date: 20120608
  Serious: Yes (Death)
  Sender: FDA-Public Use
  Company Number: ES-SANOFI-AVENTIS-2012SA015774

PATIENT

DRUGS (4)
  1. BEVACIZUMAB [Suspect]
     Route: 065
  2. CAPECITABINE [Suspect]
     Dosage: ON DAYS 1-14 EVERY 3 WEEKS, TOTAL 6 CYCLES
     Route: 065
  3. BEVACIZUMAB [Suspect]
     Dosage: ON DAY 1, TOTAL 6 CYCLES
     Route: 065
  4. OXALIPLATIN [Suspect]
     Dosage: ON DAY 1, 6 CYCLES
     Route: 065

REACTIONS (1)
  - GASTROINTESTINAL PERFORATION [None]
